FAERS Safety Report 15582548 (Version 7)
Quarter: 2019Q3

REPORT INFORMATION
  Report Type: Report from Study
  Country: JP (occurrence: JP)
  Receive Date: 20181105
  Receipt Date: 20190830
  Transmission Date: 20191004
  Serious: Yes (Hospitalization)
  Sender: FDA-Public Use
  Company Number: JP-ROCHE-2199819

PATIENT
  Age: 69 Year
  Sex: Female
  Weight: 45.7 kg

DRUGS (24)
  1. SPIRONOLACTONE. [Concomitant]
     Active Substance: SPIRONOLACTONE
     Route: 048
  2. MIYA-BM [Concomitant]
     Active Substance: CLOSTRIDIUM BUTYRICUM SPORES STRAIN M-55
     Route: 065
     Dates: start: 20181129, end: 20181204
  3. METHYCOBAL [Concomitant]
     Active Substance: METHYLCOBALAMIN
     Indication: HYPOAESTHESIA
     Route: 065
     Dates: start: 20181206
  4. BEVACIZUMAB. [Suspect]
     Active Substance: BEVACIZUMAB
     Indication: HEPATOCELLULAR CARCINOMA
     Dosage: LAST BEVACIZUMAB ADMINISTERED ON 02/OCT/2018 (673 MG)
     Route: 042
     Dates: start: 20180710
  5. ROHTO GOLD 40 [Concomitant]
     Indication: ASTHENOPIA
  6. LASIX [Concomitant]
     Active Substance: FUROSEMIDE
     Route: 065
     Dates: start: 20181130, end: 20181207
  7. LASIX [Concomitant]
     Active Substance: FUROSEMIDE
     Route: 065
     Dates: start: 20181208
  8. BONOTEO [Concomitant]
     Active Substance: MINODRONIC ACID
  9. BUSCOPAN [Concomitant]
     Active Substance: BUTYLSCOPOLAMINE BROMIDE
     Route: 065
     Dates: start: 20181208, end: 20181208
  10. DAIKENCHUTO [Concomitant]
     Active Substance: HERBALS
     Route: 065
     Dates: start: 20181203
  11. PARIET [Concomitant]
     Active Substance: RABEPRAZOLE SODIUM
     Route: 065
     Dates: start: 20160115
  12. MAGMITT [Concomitant]
     Active Substance: MAGNESIUM OXIDE
     Route: 065
     Dates: start: 20130212, end: 20181021
  13. ALDACTONE-A [Concomitant]
     Active Substance: SPIRONOLACTONE
     Route: 065
  14. HEPARINOID [Concomitant]
     Active Substance: CHONDROITIN SULFATE (BOVINE)
     Route: 065
     Dates: start: 20181017
  15. LASIX [Concomitant]
     Active Substance: FUROSEMIDE
     Route: 065
     Dates: start: 20181129
  16. ATEZOLIZUMAB. [Suspect]
     Active Substance: ATEZOLIZUMAB
     Indication: HEPATOCELLULAR CARCINOMA
     Dosage: MOST RECENT DOSE OF ATEZOLIZUMAB ON 02/OCT/2018
     Route: 042
     Dates: start: 20180710
  17. ALFACALCIDOL [Concomitant]
     Active Substance: ALFACALCIDOL
  18. ALBUMIN [Concomitant]
     Active Substance: ALBUMIN HUMAN
     Route: 042
     Dates: start: 20181129, end: 20181201
  19. LACTEC [Concomitant]
     Active Substance: CALCIUM CHLORIDE ANHYDROUS\POTASSIUM CHLORIDE\SODIUM CHLORIDE\SODIUM LACTATE
     Indication: FATIGUE
     Route: 065
     Dates: start: 20181129, end: 20181129
  20. BUSCOPAN [Concomitant]
     Active Substance: BUTYLSCOPOLAMINE BROMIDE
     Indication: DIARRHOEA
     Route: 065
     Dates: start: 20181018, end: 20181018
  21. MIYA-BM [Concomitant]
     Active Substance: CLOSTRIDIUM BUTYRICUM SPORES STRAIN M-55
     Indication: DIARRHOEA
     Route: 065
     Dates: start: 20181019, end: 20181030
  22. BARACLUDE [Concomitant]
     Active Substance: ENTECAVIR
     Route: 065
     Dates: start: 20120315
  23. ALBUMIN [Concomitant]
     Active Substance: ALBUMIN HUMAN
     Indication: ASCITES
     Route: 042
     Dates: start: 20181022, end: 20181024
  24. DEXALTIN [Concomitant]
     Active Substance: DEXAMETHASONE
     Indication: STOMATITIS
     Dosage: 1 MG/G
     Route: 061
     Dates: start: 20181129, end: 20181210

REACTIONS (1)
  - Mesenteric vein thrombosis [Unknown]

NARRATIVE: CASE EVENT DATE: 20180928
